FAERS Safety Report 5819203-4 (Version None)
Quarter: 2008Q3

REPORT INFORMATION
  Report Type: 
  Country: None (occurrence: None)
  Receive Date: 20080723
  Receipt Date: 20080714
  Transmission Date: 20090109
  Serious: Yes (Hospitalization)
  Sender: FDA-Public Use
  Company Number: US-GENENTECH-264400

PATIENT
  Sex: Male
  Weight: 63 kg

DRUGS (4)
  1. BLINDED BORTEZOMIB [Suspect]
     Indication: MULTIPLE MYELOMA
     Dosage: 945 MG, Q3W
     Route: 042
     Dates: start: 20080630
  2. BLINDED BEVACIZUMAB [Suspect]
     Indication: MULTIPLE MYELOMA
     Dosage: 945 MG, Q3W
     Route: 042
     Dates: start: 20080630
  3. BLINDED PLACEBO [Suspect]
     Indication: MULTIPLE MYELOMA
     Dosage: 945 MG, Q3W
     Route: 042
     Dates: start: 20080630
  4. VELCADE [Suspect]
     Indication: MULTIPLE MYELOMA

REACTIONS (1)
  - RENAL FAILURE ACUTE [None]
